FAERS Safety Report 14609087 (Version 1)
Quarter: 2018Q1

REPORT INFORMATION
  Report Type: Spontaneous
  Country: SE (occurrence: SE)
  Receive Date: 20180307
  Receipt Date: 20180307
  Transmission Date: 20180509
  Serious: Yes (Hospitalization)
  Sender: FDA-Public Use
  Company Number: SE-TEVA-2018-SE-864422

PATIENT
  Age: 77 Year
  Sex: Male

DRUGS (4)
  1. IPREN 200 MG FILMDRAGERAD TABLETT [Suspect]
     Active Substance: IBUPROFEN
     Dosage: 1-2X3 VB
     Route: 065
     Dates: start: 2017, end: 20171106
  2. ELIQUIS [Concomitant]
     Active Substance: APIXABAN
  3. VALSARTAN. [Suspect]
     Active Substance: VALSARTAN
     Route: 065
  4. SPIRONOLACTONE. [Concomitant]
     Active Substance: SPIRONOLACTONE

REACTIONS (1)
  - Renal failure [Recovering/Resolving]

NARRATIVE: CASE EVENT DATE: 201711
